FAERS Safety Report 11280975 (Version 2)
Quarter: 2015Q3

REPORT INFORMATION
  Report Type: Spontaneous
  Country: US (occurrence: US)
  Receive Date: 20150717
  Receipt Date: 20150819
  Transmission Date: 20151125
  Serious: Yes (Other)
  Sender: FDA-Public Use
  Company Number: US-JNJFOC-20150609339

PATIENT
  Sex: Male
  Weight: 97.16 kg

DRUGS (1)
  1. SYLVANT [Suspect]
     Active Substance: SILTUXIMAB
     Indication: CASTLEMAN^S DISEASE
     Dosage: 1271 MG DOSE OF THREE 400 MG VIALS AND ONE 100 MG VIAL
     Route: 042
     Dates: start: 20141009, end: 20150506

REACTIONS (1)
  - Disease progression [Recovered/Resolved]
